FAERS Safety Report 5683125-2 (Version None)
Quarter: 2008Q1

REPORT INFORMATION
  Report Type: 
  Country: None (occurrence: None)
  Receive Date: 20080327
  Receipt Date: 20080319
  Transmission Date: 20080703
  Serious: Yes (Hospitalization)
  Sender: FDA-Public Use
  Company Number: US-ELI_LILLY_AND_COMPANY-US200803000009

PATIENT
  Age: 67 Year
  Sex: Male
  Weight: 149.57 kg

DRUGS (10)
  1. BYETTA [Suspect]
     Indication: TYPE 2 DIABETES MELLITUS
     Dosage: 5 UG, 2/D
     Route: 058
     Dates: start: 20050801, end: 20050901
  2. BYETTA [Suspect]
     Dosage: 10 UG, 2/D
     Route: 058
     Dates: start: 20050901, end: 20080219
  3. CYMBALTA [Concomitant]
     Indication: DEPRESSION
     Dosage: 60 MG, DAILY (1/D)
  4. DETROL [Concomitant]
     Indication: URINARY INCONTINENCE
     Dosage: 4 MG, DAILY (1/D)
     Route: 048
  5. LOTREL [Concomitant]
     Indication: HYPERTENSION
     Dosage: 10 MG, DAILY (1/D)
     Route: 048
  6. LOVASTATIN [Concomitant]
     Indication: BLOOD CHOLESTEROL INCREASED
     Dosage: 20 MG, DAILY (1/D)
     Route: 048
  7. ASPIRIN [Concomitant]
     Indication: PROPHYLAXIS
     Dosage: 81 MG, DAILY (1/D)
     Route: 048
  8. COREG [Concomitant]
     Dosage: 12.5 MG, UNK
     Route: 048
  9. TESTOSTERONE [Concomitant]
     Indication: PROSTATE EXAMINATION
     Route: 061
  10. LOZOL [Concomitant]
     Indication: BLOOD PRESSURE
     Dosage: 12.5 MG, DAILY (1/D)

REACTIONS (2)
  - PANCREATITIS [None]
  - WEIGHT DECREASED [None]
